FAERS Safety Report 5690511-3 (Version None)
Quarter: 2008Q1

REPORT INFORMATION
  Report Type: 
  Country: None (occurrence: None)
  Receive Date: 20080331
  Receipt Date: 20080331
  Transmission Date: 20080703
  Serious: No
  Sender: FDA-Public Use
  Company Number: None

PATIENT
  Sex: Male
  Weight: 17.6903 kg

DRUGS (1)
  1. SINGULAIR [Suspect]
     Indication: ASTHMA
     Dosage: 1 PACKET EVERY NIGHT BEDTIM PO
     Route: 048
     Dates: start: 20050101, end: 20070101

REACTIONS (7)
  - ABNORMAL BEHAVIOUR [None]
  - AGGRESSION [None]
  - EYE DISORDER [None]
  - HEAD BANGING [None]
  - INABILITY TO CRAWL [None]
  - MOOD ALTERED [None]
  - VOMITING [None]
